FAERS Safety Report 21727921 (Version 1)
Quarter: 2022Q4

REPORT INFORMATION
  Report Type: Spontaneous
  Country: US (occurrence: US)
  Receive Date: 20221214
  Receipt Date: 20221214
  Transmission Date: 20230112
  Serious: No
  Sender: FDA-Public Use
  Company Number: US-BAYER-2022A170521

PATIENT
  Sex: Male

DRUGS (1)
  1. LOTRIMIN ULTRA ATHLETES FOOT [Suspect]
     Active Substance: BUTENAFINE HYDROCHLORIDE
     Dosage: UNK

REACTIONS (1)
  - Drug ineffective [Unknown]
